FAERS Safety Report 10042671 (Version 1)
Quarter: 2014Q1

REPORT INFORMATION
  Report Type: Report from Study
  Country: MX (occurrence: MX)
  Receive Date: 20140327
  Receipt Date: 20140327
  Transmission Date: 20141002
  Serious: Yes (Death, Other)
  Sender: FDA-Public Use
  Company Number: PHHY2014MX037421

PATIENT
  Age: 71 Year
  Sex: Male

DRUGS (5)
  1. STALEVO [Suspect]
     Dosage: UNK UKN, UNK
  2. PAROXETINE [Suspect]
     Indication: RESTLESSNESS
     Dosage: 1 UKN, UNK
     Dates: start: 2012
  3. ANTIDEPRESSANTS [Concomitant]
     Dosage: UNK UKN, UNK
  4. NIMOTOP [Concomitant]
     Dosage: UNK UKN, UNK
  5. MVI [Concomitant]
     Dosage: UNK UKN, UNK

REACTIONS (2)
  - Infarction [Fatal]
  - Cerebrovascular accident [Recovered/Resolved]
